FAERS Safety Report 9364211 (Version 3)
Quarter: 2013Q4

REPORT INFORMATION
  Report Type: Spontaneous
  Country: GB (occurrence: GB)
  Receive Date: 20130624
  Receipt Date: 20131028
  Transmission Date: 20140711
  Serious: Yes (Other)
  Sender: FDA-Public Use
  Company Number: GB-TEVA-413288ISR

PATIENT
  Age: 26 Year
  Sex: Female

DRUGS (30)
  1. TRAMADOL [Suspect]
     Indication: PAIN
  2. TRAMADOL [Suspect]
     Indication: MYALGIA
  3. TRAMADOL [Suspect]
     Indication: OSTEOPOROSIS
  4. TRAMADOL [Suspect]
     Indication: OSTEOARTHRITIS
  5. TRAMADOL [Suspect]
     Indication: RHEUMATOID ARTHRITIS
  6. TRAMADOL [Suspect]
     Indication: HYPERMOBILITY SYNDROME
  7. NAPROXEN [Suspect]
     Indication: PAIN
  8. NAPROXEN [Suspect]
     Indication: MYALGIA
  9. NAPROXEN [Suspect]
     Indication: OSTEOPOROSIS
  10. NAPROXEN [Suspect]
     Indication: OSTEOARTHRITIS
  11. NAPROXEN [Suspect]
     Indication: RHEUMATOID ARTHRITIS
  12. NAPROXEN [Suspect]
     Indication: HYPERMOBILITY SYNDROME
  13. DICLOFENAC [Suspect]
     Indication: HYPERMOBILITY SYNDROME
  14. DICLOFENAC [Suspect]
     Indication: RHEUMATOID ARTHRITIS
  15. DICLOFENAC [Suspect]
     Indication: OSTEOARTHRITIS
  16. DICLOFENAC [Suspect]
     Indication: OSTEOPOROSIS
  17. DICLOFENAC [Suspect]
     Indication: MYALGIA
  18. DICLOFENAC [Suspect]
     Indication: PAIN
  19. LEFLUNOMIDE [Suspect]
     Indication: PAIN
  20. LEFLUNOMIDE [Suspect]
     Indication: RHEUMATOID ARTHRITIS
  21. LEFLUNOMIDE [Suspect]
     Indication: HYPERMOBILITY SYNDROME
  22. LEFLUNOMIDE [Suspect]
     Indication: OSTEOARTHRITIS
  23. LEFLUNOMIDE [Suspect]
     Indication: OSTEOPOROSIS
  24. LEFLUNOMIDE [Suspect]
     Indication: MYALGIA
  25. CO-CODAMOL [Suspect]
     Indication: MYALGIA
  26. CO-CODAMOL [Suspect]
     Indication: OSTEOPOROSIS
  27. CO-CODAMOL [Suspect]
     Indication: OSTEOARTHRITIS
  28. CO-CODAMOL [Suspect]
     Indication: RHEUMATOID ARTHRITIS
  29. CO-CODAMOL [Suspect]
     Indication: HYPERMOBILITY SYNDROME
  30. CO-CODAMOL [Suspect]
     Indication: PAIN

REACTIONS (2)
  - Suicidal ideation [Unknown]
  - Drug ineffective [Unknown]
